FAERS Safety Report 7429759-6 (Version None)
Quarter: 2011Q2

REPORT INFORMATION
  Report Type: 
  Country: None (occurrence: None)
  Receive Date: 20110421
  Receipt Date: 20110420
  Transmission Date: 20111010
  Serious: Yes (Hospitalization)
  Sender: FDA-Public Use
  Company Number: PHHO2011SE06929

PATIENT
  Sex: Male
  Weight: 88 kg

DRUGS (4)
  1. EVEROLIMUS [Suspect]
     Indication: RENAL TRANSPLANT
     Dosage: UNK
  2. CELLCEPT [Concomitant]
     Indication: RENAL TRANSPLANT
  3. PREDNISOLONE [Concomitant]
     Indication: RENAL TRANSPLANT
  4. NEORAL [Suspect]
     Indication: RENAL TRANSPLANT

REACTIONS (2)
  - RENAL CYST HAEMORRHAGE [None]
  - RENAL CYST INFECTION [None]
